FAERS Safety Report 5544583-7 (Version None)
Quarter: 2007Q4

REPORT INFORMATION
  Report Type: 
  Country: None (occurrence: None)
  Receive Date: 20071210
  Receipt Date: 20070103
  Transmission Date: 20080405
  Serious: No
  Sender: FDA-Public Use
  Company Number: US-AMGEN-KDL205478

PATIENT
  Sex: Female

DRUGS (2)
  1. ENBREL [Suspect]
     Indication: RHEUMATOID ARTHRITIS
     Route: 058
     Dates: start: 20030101
  2. AZULFIDINE EN-TABS [Concomitant]
     Dates: start: 20020101, end: 20061120

REACTIONS (5)
  - BILE DUCT STONE [None]
  - DYSPNOEA [None]
  - LETHARGY [None]
  - LIVER DISORDER [None]
  - PYREXIA [None]
